FAERS Safety Report 10501995 (Version 1)
Quarter: 2014Q4

REPORT INFORMATION
  Report Type: Spontaneous
  Country: US (occurrence: US)
  Receive Date: 20141007
  Receipt Date: 20141007
  Transmission Date: 20150528
  Serious: No
  Sender: FDA-Public Use
  Company Number: US-009507513-1409USA013418

PATIENT
  Age: 57 Year
  Sex: Male

DRUGS (3)
  1. PEGINTRON [Suspect]
     Active Substance: PEGINTERFERON ALFA-2B
     Dosage: REDIPEN, 150 MICROGRAM, ONCE WEEKLY
     Dates: start: 20140911
  2. OLYSIO [Suspect]
     Active Substance: SIMEPREVIR
     Dosage: UNK
  3. RIBASPHERE [Suspect]
     Active Substance: RIBAVIRIN
     Dosage: UNK

REACTIONS (1)
  - Headache [Recovered/Resolved]

NARRATIVE: CASE EVENT DATE: 201409
